FAERS Safety Report 4788048-9 (Version None)
Quarter: 2005Q4

REPORT INFORMATION
  Report Type: 
  Country: None (occurrence: None)
  Receive Date: 20051004
  Receipt Date: 20051004
  Transmission Date: 20060501
  Serious: Yes (Other)
  Sender: FDA-Public Use
  Company Number: None

PATIENT
  Age: 40 Year
  Sex: Male
  Weight: 65.318 kg

DRUGS (3)
  1. PLAVIX [Suspect]
     Indication: THROMBOSIS PROPHYLAXIS
     Dosage: 75 MG.  ONCE DAILY  PO
     Route: 048
     Dates: start: 20050101, end: 20051003
  2. DIPYRIDAMOLE [Suspect]
     Indication: ANTICOAGULANT THERAPY
     Dosage: 25 MG.  ONCE DAILY  PO
     Route: 048
     Dates: start: 20050101, end: 20051003
  3. ASPIRIN [Concomitant]

REACTIONS (2)
  - ABDOMINAL PAIN UPPER [None]
  - BACK PAIN [None]
